FAERS Safety Report 17727724 (Version 2)
Quarter: 2020Q2

REPORT INFORMATION
  Report Type: Report from Study
  Country: BR (occurrence: BR)
  Receive Date: 20200430
  Receipt Date: 20200630
  Transmission Date: 20200714
  Serious: Yes (Disabling, Other)
  Sender: FDA-Public Use
  Company Number: NVSC2019BR086420

PATIENT
  Sex: Female

DRUGS (11)
  1. EXELON [Suspect]
     Active Substance: RIVASTIGMINE TARTRATE
     Indication: DEMENTIA WITH LEWY BODIES
     Dosage: 13.3MG PATCH 15 CM2, 27MG RIVASTIGMINE BASE
     Route: 065
  2. DONAREN [Concomitant]
     Active Substance: TRAZODONE HYDROCHLORIDE
     Dosage: 150 MG
     Route: 065
     Dates: start: 20190406
  3. DONAREN [Concomitant]
     Active Substance: TRAZODONE HYDROCHLORIDE
     Indication: ANXIETY
     Dosage: 100 MG
     Route: 065
     Dates: start: 20190402
  4. DONAREN [Concomitant]
     Active Substance: TRAZODONE HYDROCHLORIDE
     Dosage: 300 MG (2 TABLETS/DAY)
     Route: 065
  5. EXELON [Suspect]
     Active Substance: RIVASTIGMINE TARTRATE
     Dosage: UNK (27MG/15CM2)
     Route: 065
     Dates: start: 201904
  6. EXELON [Suspect]
     Active Substance: RIVASTIGMINE TARTRATE
     Dosage: 13.3 UNK
     Route: 065
  7. EXELON [Suspect]
     Active Substance: RIVASTIGMINE TARTRATE
     Indication: MEMORY IMPAIRMENT
     Dosage: 4.6 MG, QD (PATCH5 CM2, 9MG RIVASTIGMINE BASE)
     Route: 065
     Dates: start: 20190413
  8. DONAREN [Concomitant]
     Active Substance: TRAZODONE HYDROCHLORIDE
     Indication: DEPRESSION
     Dosage: 50 MG, OT (USED 1/3 OF THE TABLET)
     Route: 048
     Dates: start: 20190329
  9. OLANZAPINE. [Concomitant]
     Active Substance: OLANZAPINE
     Indication: PRODUCT USED FOR UNKNOWN INDICATION
     Dosage: UNK
     Route: 048
  10. EXELON [Suspect]
     Active Substance: RIVASTIGMINE TARTRATE
     Indication: DAYDREAMING
     Dosage: 13.3MG PATCH 15 CM2, 27MG RIVASTIGMINE BASE
     Route: 065
  11. RIVOTRIL [Concomitant]
     Active Substance: CLONAZEPAM
     Indication: PRODUCT USED FOR UNKNOWN INDICATION
     Dosage: 1 DF, OT
     Route: 048

REACTIONS (9)
  - Musculoskeletal stiffness [Not Recovered/Not Resolved]
  - Osteoarthritis [Not Recovered/Not Resolved]
  - Pain [Not Recovered/Not Resolved]
  - Cerebral disorder [Not Recovered/Not Resolved]
  - Movement disorder [Not Recovered/Not Resolved]
  - Inappropriate schedule of product administration [Not Recovered/Not Resolved]
  - Underdose [Unknown]
  - Diabetes mellitus [Not Recovered/Not Resolved]
  - Product adhesion issue [Unknown]
